FAERS Safety Report 5484106-4 (Version None)
Quarter: 2007Q4

REPORT INFORMATION
  Report Type: 
  Country: None (occurrence: None)
  Receive Date: 20071012
  Receipt Date: 20071002
  Transmission Date: 20080405
  Serious: Yes (Other)
  Sender: FDA-Public Use
  Company Number: US-SHR-US-2007-026945

PATIENT
  Age: 53 Year
  Sex: Female
  Weight: 73.5 kg

DRUGS (11)
  1. BETASERON [Suspect]
     Indication: RELAPSING-REMITTING MULTIPLE SCLEROSIS
     Dosage: 8 MIU, EVERY 2D
     Route: 058
     Dates: start: 19990101, end: 19990101
  2. BETASERON [Suspect]
     Dosage: 8 MIU, EVERY 2D
     Route: 058
     Dates: start: 20010412
  3. BETASERON [Suspect]
     Dosage: 8 MIU, EVERY 2D
     Route: 058
     Dates: start: 20011011
  4. DARVOCET [Concomitant]
  5. NEURONTIN [Concomitant]
  6. FOLIC ACID [Concomitant]
  7. ZOLOFT [Concomitant]
  8. SKELAXIN [Concomitant]
  9. BACLOFEN [Concomitant]
  10. ALPRAZOLAM [Concomitant]
  11. LIBRAX [Concomitant]

REACTIONS (4)
  - GASTRIC BYPASS [None]
  - HEAD INJURY [None]
  - LACERATION [None]
  - WEIGHT DECREASED [None]
